FAERS Safety Report 24694987 (Version 1)
Quarter: 2024Q4

REPORT INFORMATION
  Report Type: Spontaneous
  Country: US (occurrence: None)
  Receive Date: 20241203
  Receipt Date: 20241203
  Transmission Date: 20250115
  Serious: Yes (Other)
  Sender: Public
  Company Number: None

PATIENT
  Age: 82 Year
  Sex: Female
  Weight: 60.01 kg

DRUGS (1)
  1. REVLIMID [Suspect]
     Active Substance: LENALIDOMIDE
     Indication: Diffuse large B-cell lymphoma
     Dosage: FREQUENCY : DAILY;?
     Route: 048
     Dates: start: 20220516

REACTIONS (5)
  - Urinary tract infection [None]
  - Dehydration [None]
  - Blood sodium increased [None]
  - Diabetes mellitus [None]
  - Therapy interrupted [None]

NARRATIVE: CASE EVENT DATE: 20241122
